FAERS Safety Report 16959674 (Version 11)
Quarter: 2020Q1

REPORT INFORMATION
  Report Type: Spontaneous
  Country: US (occurrence: US)
  Receive Date: 20191025
  Receipt Date: 20200124
  Transmission Date: 20200409
  Serious: No
  Sender: FDA-Public Use
  Company Number: US-UNITED THERAPEUTICS-UNT-2019-017644

PATIENT
  Age: 68 Year
  Sex: Female
  Weight: 60.32 kg

DRUGS (15)
  1. TYVASO [Suspect]
     Active Substance: TREPROSTINIL
     Indication: PULMONARY ARTERIAL HYPERTENSION
     Dosage: 18-54 ?G, QID
     Dates: start: 20191009
  2. TYVASO [Suspect]
     Active Substance: TREPROSTINIL
     Dosage: 30 ?G, UNK
  3. TYVASO [Suspect]
     Active Substance: TREPROSTINIL
     Dosage: 18 ?G, QID
  4. TYVASO [Suspect]
     Active Substance: TREPROSTINIL
     Dosage: UNK
  5. TYVASO [Suspect]
     Active Substance: TREPROSTINIL
     Dosage: 30 ?G, QID
  6. TYVASO [Suspect]
     Active Substance: TREPROSTINIL
     Dosage: 24 ?G, UNK
  7. LETAIRIS [Suspect]
     Active Substance: AMBRISENTAN
     Indication: PULMONARY ARTERIAL HYPERTENSION
     Dosage: 10 MG, QD
     Route: 048
     Dates: start: 20190920, end: 201912
  8. ELIQUIS [Concomitant]
     Active Substance: APIXABAN
     Indication: PRODUCT USED FOR UNKNOWN INDICATION
     Dosage: UNK
     Route: 065
  9. TYVASO [Suspect]
     Active Substance: TREPROSTINIL
     Dosage: UNK
  10. OPSUMIT [Concomitant]
     Active Substance: MACITENTAN
     Indication: PRODUCT USED FOR UNKNOWN INDICATION
     Dosage: UNK
     Route: 065
  11. TYVASO [Suspect]
     Active Substance: TREPROSTINIL
     Dosage: UNK
  12. TYVASO [Suspect]
     Active Substance: TREPROSTINIL
     Dosage: UNK
  13. TYVASO [Suspect]
     Active Substance: TREPROSTINIL
     Dosage: 60-120 ?G, QID
  14. DILTIAZEM. [Concomitant]
     Active Substance: DILTIAZEM
     Indication: PRODUCT USED FOR UNKNOWN INDICATION
     Dosage: UNK
     Route: 065
  15. TYVASO [Suspect]
     Active Substance: TREPROSTINIL
     Dosage: 36 ?G, UNK

REACTIONS (22)
  - Palpitations [Not Recovered/Not Resolved]
  - Weight fluctuation [Recovered/Resolved]
  - Influenza [Unknown]
  - Respiratory tract irritation [Not Recovered/Not Resolved]
  - Presyncope [Recovered/Resolved]
  - Arthralgia [Unknown]
  - Decreased appetite [Unknown]
  - Oedema peripheral [Recovered/Resolved]
  - Nausea [Recovered/Resolved]
  - Dyspnoea [Unknown]
  - Nasopharyngitis [Recovered/Resolved]
  - Dizziness [Recovered/Resolved]
  - Pain in extremity [Unknown]
  - Tremor [Unknown]
  - Wrong technique in device usage process [Unknown]
  - Pharyngeal erythema [Not Recovered/Not Resolved]
  - Cough [Not Recovered/Not Resolved]
  - Blood pressure increased [Unknown]
  - Asthenia [Unknown]
  - Vitamin D decreased [Unknown]
  - Off label use [Unknown]
  - Chills [Unknown]

NARRATIVE: CASE EVENT DATE: 2019
